FAERS Safety Report 14868556 (Version 2)
Quarter: 2018Q2

REPORT INFORMATION
  Report Type: Spontaneous
  Country: US (occurrence: US)
  Receive Date: 20180509
  Receipt Date: 20180519
  Transmission Date: 20180711
  Serious: Yes (Hospitalization, Other)
  Sender: FDA-Public Use
  Company Number: US-B.I. PHARMACEUTICALS,INC./RIDGEFIELD-2018-BI-024847

PATIENT
  Sex: Female

DRUGS (1)
  1. MICARDIS HCT [Suspect]
     Active Substance: HYDROCHLOROTHIAZIDE\TELMISARTAN
     Indication: HYPERTENSION
     Dosage: FORM STRENGTH: 80 MG / 12.5 MG; ADMINISTRATION CORRECT? YES
     Route: 048
     Dates: start: 201705

REACTIONS (9)
  - Pyelonephritis [Unknown]
  - Influenza [Unknown]
  - Hand deformity [Unknown]
  - Product quality issue [Unknown]
  - Visual impairment [Unknown]
  - Lethargy [Unknown]
  - Nasopharyngitis [Unknown]
  - Single functional kidney [Unknown]
  - Urinary tract infection [Unknown]
